FAERS Safety Report 24557474 (Version 1)
Quarter: 2024Q4

REPORT INFORMATION
  Report Type: Spontaneous
  Country: US (occurrence: US)
  Receive Date: 20241028
  Receipt Date: 20241028
  Transmission Date: 20250114
  Serious: No
  Sender: Harrow Health
  Company Number: US-IMP-2024000856

PATIENT
  Age: 72 Year
  Sex: Female

DRUGS (1)
  1. VEVYE [Suspect]
     Active Substance: CYCLOSPORINE
     Indication: Product used for unknown indication
     Dosage: ONE DROP IN EACH EYE IN THE MORNING AND THEN ONE DROP IN EACH EYE IN THE EVENING
     Route: 047
     Dates: start: 20240705, end: 20241014

REACTIONS (4)
  - Eye colour change [Unknown]
  - Product design issue [Unknown]
  - Product delivery mechanism issue [Unknown]
  - Incorrect dose administered [Unknown]

NARRATIVE: CASE EVENT DATE: 20240901
